FAERS Safety Report 11286177 (Version 1)
Quarter: 2015Q3

REPORT INFORMATION
  Report Type: Spontaneous
  Country: US (occurrence: US)
  Receive Date: 20150721
  Receipt Date: 20150721
  Transmission Date: 20151125
  Serious: No
  Sender: FDA-Public Use
  Company Number: US-UNITED THERAPEUTICS-UNT-2015-000836

PATIENT
  Sex: Female
  Weight: 77.98 kg

DRUGS (1)
  1. TYVASO [Suspect]
     Active Substance: TREPROSTINIL
     Indication: PULMONARY HYPERTENSION
     Dosage: 18-54 MICROGRAM, QID
     Dates: start: 20140918

REACTIONS (4)
  - Device issue [Unknown]
  - Cough [Unknown]
  - Therapy cessation [Unknown]
  - Sinus congestion [Unknown]
